FAERS Safety Report 4577248-9 (Version None)
Quarter: 2005Q1

REPORT INFORMATION
  Report Type: 
  Country: None (occurrence: None)
  Receive Date: 20050209
  Receipt Date: 20050126
  Transmission Date: 20050727
  Serious: Yes (Death)
  Sender: FDA-Public Use
  Company Number: 2004AL000954

PATIENT
  Age: 28 Year
  Sex: Male

DRUGS (3)
  1. HYDRAMINE COUGH SRYUP (DIPHENHYDRAMINE HYDROCHLORIDE COUGH SYRUP)(ALPH [Suspect]
     Dosage: PO
     Route: 048
  2. HYDRAMINE [Suspect]
     Dosage: PO
     Route: 048
  3. IMIPRAMINE [Suspect]
     Dosage: PO
     Route: 048

REACTIONS (9)
  - BLOOD PH DECREASED [None]
  - BLOOD PRESSURE DIASTOLIC DECREASED [None]
  - BODY TEMPERATURE DECREASED [None]
  - COMA [None]
  - COMPLETED SUICIDE [None]
  - CONVULSION [None]
  - INTENTIONAL MISUSE [None]
  - SINUS TACHYCARDIA [None]
  - VENTRICULAR FIBRILLATION [None]
